FAERS Safety Report 12591362 (Version 2)
Quarter: 2016Q3

REPORT INFORMATION
  Report Type: Spontaneous
  Country: CO (occurrence: CO)
  Receive Date: 20160726
  Receipt Date: 20160831
  Transmission Date: 20161109
  Serious: Yes (Hospitalization)
  Sender: FDA-Public Use
  Company Number: CO-BAXTER-2016BAX038157

PATIENT
  Age: 62 Year
  Sex: Male
  Weight: 63 kg

DRUGS (2)
  1. DIANEAL PD-2 WITH DEXTROSE [Suspect]
     Active Substance: CALCIUM CHLORIDE\DEXTROSE\MAGNESIUM CHLORIDE\SODIUM CHLORIDE\SODIUM LACTATE
     Indication: CHRONIC KIDNEY DISEASE
     Route: 033
  2. DIANEAL PD-2 WITH DEXTROSE [Suspect]
     Active Substance: CALCIUM CHLORIDE\DEXTROSE\MAGNESIUM CHLORIDE\SODIUM CHLORIDE\SODIUM LACTATE
     Indication: PERITONEAL DIALYSIS

REACTIONS (3)
  - Pulmonary embolism [Recovered/Resolved]
  - Pulmonary sepsis [Recovered/Resolved]
  - Oesophagitis ulcerative [Recovered/Resolved]

NARRATIVE: CASE EVENT DATE: 20160707
